FAERS Safety Report 4369236-2 (Version None)
Quarter: 2004Q2

REPORT INFORMATION
  Report Type: 
  Country: None (occurrence: None)
  Receive Date: 20040603
  Receipt Date: 20031117
  Transmission Date: 20050107
  Serious: No
  Sender: FDA-Public Use
  Company Number: US-GLAXOSMITHKLINE-A0439963A

PATIENT
  Age: 33 Year
  Sex: Female

DRUGS (2)
  1. AUGMENTIN [Suspect]
     Indication: OTITIS MEDIA
     Dosage: 1TAB TWICE PER DAY
     Route: 048
     Dates: start: 20031112
  2. SUDAFED PM [Concomitant]
     Indication: OTITIS MEDIA
     Route: 048

REACTIONS (1)
  - DRUG INEFFECTIVE [None]
